FAERS Safety Report 8345113-7 (Version None)
Quarter: 2012Q2

REPORT INFORMATION
  Report Type: 
  Country: None (occurrence: None)
  Receive Date: 20120508
  Receipt Date: 20120427
  Transmission Date: 20120825
  Serious: Yes (Hospitalization)
  Sender: FDA-Public Use
  Company Number: CA-JNJFOC-20120201681

PATIENT
  Sex: Female
  Weight: 57 kg

DRUGS (5)
  1. VITAMIN B-12 [Concomitant]
  2. REMICADE [Suspect]
     Indication: CROHN'S DISEASE
     Dosage: 66 INFUSIONS
     Route: 042
     Dates: start: 20080102
  3. ENTOCORT EC [Concomitant]
  4. ATIVAN [Concomitant]
  5. LOMOTIL [Concomitant]

REACTIONS (3)
  - RENAL MASS [None]
  - DECREASED APPETITE [None]
  - NEPHROLITHIASIS [None]
